FAERS Safety Report 10312611 (Version 1)
Quarter: 2014Q3

REPORT INFORMATION
  Report Type: Spontaneous
  Country: US (occurrence: None)
  Receive Date: 20140717
  Receipt Date: 20140717
  Transmission Date: 20150326
  Serious: Yes (Death)
  Sender: FDA-Public Use
  Company Number: None

PATIENT
  Age: 61 Year
  Sex: Male
  Weight: 108.86 kg

DRUGS (19)
  1. AMLODIPINE BESYLATE. [Concomitant]
     Active Substance: AMLODIPINE BESYLATE
  2. CABOZANTINIB [Suspect]
     Active Substance: CABOZANTINIB
     Indication: THYROID CANCER
     Route: 048
     Dates: start: 20140424, end: 20140517
  3. LISINOPRIL. [Concomitant]
     Active Substance: LISINOPRIL
  4. LOVASTATIN. [Concomitant]
     Active Substance: LOVASTATIN
  5. MAGNESIUM [Concomitant]
     Active Substance: MAGNESIUM
  6. POLYETHYLENE GLYCOL [Concomitant]
     Active Substance: POLYETHYLENE GLYCOLS
  7. TAMSULOSIN [Concomitant]
     Active Substance: TAMSULOSIN
  8. CALCIUM CARBONATE-VITAMIN D [Concomitant]
     Active Substance: CALCIUM CARBONATE\VITAMIN D
  9. DOCUSATE SODIUM. [Concomitant]
     Active Substance: DOCUSATE SODIUM
  10. FIBER [Concomitant]
     Active Substance: PSYLLIUM HUSK
  11. SENNOSIDES [Concomitant]
     Active Substance: SENNOSIDES
  12. TOPIRAMATE. [Concomitant]
     Active Substance: TOPIRAMATE
  13. CALCITRIOL. [Concomitant]
     Active Substance: CALCITRIOL
  14. MORPHINE [Concomitant]
     Active Substance: MORPHINE
  15. SILDENEFIL CITRATE [Concomitant]
  16. SYNTHROID [Concomitant]
     Active Substance: LEVOTHYROXINE SODIUM
  17. OMEPRAZOLE. [Concomitant]
     Active Substance: OMEPRAZOLE
  18. FINASTERIDE. [Concomitant]
     Active Substance: FINASTERIDE
  19. ASPIRIN. [Concomitant]
     Active Substance: ASPIRIN

REACTIONS (3)
  - Deep vein thrombosis [None]
  - Thrombophlebitis superficial [None]
  - Sudden death [None]

NARRATIVE: CASE EVENT DATE: 20140517
